FAERS Safety Report 4889928-6 (Version None)
Quarter: 2006Q1

REPORT INFORMATION
  Report Type: 
  Country: None (occurrence: None)
  Receive Date: 20060120
  Receipt Date: 20060106
  Transmission Date: 20060701
  Serious: Yes (Life-Threatening)
  Sender: FDA-Public Use
  Company Number: FR-2006-000424

PATIENT
  Age: 66 Year
  Sex: Female

DRUGS (11)
  1. BETASERON [Suspect]
     Indication: MULTIPLE SCLEROSIS
     Dosage: 250 ?G/DAY, 3X/WEEK, SUBCUTANEOUS
     Route: 058
     Dates: start: 19991130
  2. OESCLIM (ESTRADIOL) PATCH [Suspect]
     Indication: MULTIPLE SCLEROSIS
     Dosage: 1 APPLIC, 1X/WEEK, TRANSDERMAL
     Route: 062
  3. ENDOXAN (CYCLOPHOSPHAMIDE) POWDER FOR SOLUTION [Suspect]
     Indication: MULTIPLE SCLEROSIS
     Dosage: 1X/MONTH, INTRAVENOUS
     Route: 042
     Dates: start: 19890101, end: 19900101
  4. ESTRADIOL [Suspect]
     Dosage: 1 APPLIC, 1X/WEEK, TRANSERMAL
     Route: 062
  5. METHOTREXATE [Suspect]
     Indication: MULTIPLE SCLEROSIS
     Dosage: 7.5 MG, 1X/WEEK, ORAL
     Route: 048
     Dates: start: 19980101, end: 19990101
  6. SURGESTONE (PROMEGESTONE)TABLET, 0.500MG [Suspect]
  7. LUTENYL (NOMEGESTROL ACETATE) [Suspect]
  8. LIVIAL [Suspect]
     Dosage: ORAL
     Route: 048
  9. DANTRIUM [Concomitant]
  10. CLONAZEPAM [Concomitant]
  11. NEURONTIN [Concomitant]

REACTIONS (1)
  - BREAST CANCER FEMALE [None]
